FAERS Safety Report 4562629-X (Version None)
Quarter: 2005Q1

REPORT INFORMATION
  Report Type: 
  Country: None (occurrence: None)
  Receive Date: 20050124
  Receipt Date: 20050110
  Transmission Date: 20050727
  Serious: Yes (Other)
  Sender: FDA-Public Use
  Company Number: 2004109938

PATIENT
  Age: 68 Year
  Sex: Female

DRUGS (2)
  1. NORVASC [Suspect]
     Indication: HYPERTENSION
     Dosage: 5 MG (5 MG, 1 IN 1 D), ORAL
     Route: 048
     Dates: start: 19990916, end: 20031201
  2. ATORVASTATIN (ATORVASTATIN) [Concomitant]

REACTIONS (3)
  - ACCIDENT [None]
  - FALL [None]
  - WRIST FRACTURE [None]
